FAERS Safety Report 17675443 (Version 4)
Quarter: 2020Q2

REPORT INFORMATION
  Report Type: Report from Study
  Country: DE (occurrence: DE)
  Receive Date: 20200416
  Receipt Date: 20200527
  Transmission Date: 20200714
  Serious: Yes (Death, Hospitalization, Other)
  Sender: FDA-Public Use
  Company Number: DE-ACTELION-A-CH2020-204275

PATIENT
  Age: 69 Year
  Sex: Male
  Weight: 77 kg

DRUGS (13)
  1. AMBRISENTAN [Concomitant]
     Active Substance: AMBRISENTAN
     Dosage: 10 MG, QD
  2. PANTOPRAZOL [Concomitant]
     Active Substance: PANTOPRAZOLE SODIUM
     Indication: PROPHYLAXIS
     Dosage: UNK
     Route: 048
  3. FUROSEMID [Concomitant]
     Active Substance: FUROSEMIDE
     Indication: FLUID RETENTION
     Dosage: UNK
     Route: 048
  4. ALLOPURINOL. [Concomitant]
     Active Substance: ALLOPURINOL
     Indication: RENAL IMPAIRMENT
     Dosage: UNK
     Route: 048
  5. ADCIRCA [Concomitant]
     Active Substance: TADALAFIL
     Dosage: 40 MG, QD
  6. UPTRAVI [Suspect]
     Active Substance: SELEXIPAG
     Indication: PULMONARY ARTERIAL HYPERTENSION
     Dosage: 400 MCG, QD
     Route: 048
     Dates: start: 20191216, end: 20200330
  7. MARCUMAR [Concomitant]
     Active Substance: PHENPROCOUMON
     Dosage: UNK
     Route: 048
  8. EPLERENONE. [Concomitant]
     Active Substance: EPLERENONE
     Indication: CARDIAC DISORDER
     Dosage: UNK
     Route: 048
  9. BISOPROLOL [Concomitant]
     Active Substance: BISOPROLOL
     Indication: HYPERTENSION
     Dosage: UNK
     Route: 048
  10. BERODUAL [Concomitant]
     Active Substance: FENOTEROL HYDROBROMIDE\IPRATROPIUM BROMIDE
     Indication: RESPIRATORY DISORDER
     Dosage: UNK UNK, PRN
     Route: 055
  11. MIRTAZAPIN [Concomitant]
     Active Substance: MIRTAZAPINE
     Indication: DEPRESSION
     Dosage: UNK
     Route: 048
  12. TILIDIN [Concomitant]
     Active Substance: NALOXONE HYDROCHLORIDE\TILIDINE HYDROCHLORIDE
     Indication: PAIN
     Dosage: UNK
     Route: 048
  13. SPIRIVA [Concomitant]
     Active Substance: TIOTROPIUM BROMIDE MONOHYDRATE
     Indication: RESPIRATORY DISORDER
     Dosage: UNK, PRN
     Route: 055

REACTIONS (8)
  - Sudden cardiac death [Fatal]
  - Sudden death [Fatal]
  - Haemoglobin decreased [Unknown]
  - Transfusion [Unknown]
  - Anaemia [Unknown]
  - Coronary revascularisation [Recovered/Resolved]
  - Cardiac arrest [Fatal]
  - Gastrointestinal haemorrhage [Not Recovered/Not Resolved]

NARRATIVE: CASE EVENT DATE: 20200310
